FAERS Safety Report 8394051-2 (Version None)
Quarter: 2012Q2

REPORT INFORMATION
  Report Type: 
  Country: None (occurrence: None)
  Receive Date: 20120523
  Receipt Date: 20120510
  Transmission Date: 20120825
  Serious: Yes (Other)
  Sender: FDA-Public Use
  Company Number: DSA_56425_2012

PATIENT
  Sex: Female

DRUGS (39)
  1. SULFAMETHOXAZOLE [Concomitant]
  2. LUXIQ [Concomitant]
  3. PERIDEX [Concomitant]
  4. DIFLUCAN [Concomitant]
  5. TAMOXIFEN CITRATE [Concomitant]
  6. CUTIVATE [Concomitant]
  7. LIDOCAINE [Concomitant]
  8. ATIVAN [Concomitant]
  9. CEPHALEXIN [Concomitant]
  10. PROCHLORPERAZINE [Concomitant]
  11. LOPROX [Concomitant]
  12. CORTISPORIN [Concomitant]
  13. CLINDAMYCIN [Concomitant]
  14. CALCIUM [Concomitant]
  15. TYLENOL REGULAR [Concomitant]
  16. PACLITAXEL [Concomitant]
  17. HYDROCODONE [Concomitant]
  18. ZITHROMAX [Concomitant]
  19. MENTAX [Concomitant]
  20. KEFLEX [Concomitant]
  21. BACTRIM DS [Concomitant]
  22. PERCOCET [Concomitant]
  23. MOTRIN [Concomitant]
  24. NEULASTA [Concomitant]
  25. ONDANSETRON [Concomitant]
  26. CIPROFLOXACIN HCL [Concomitant]
  27. FLEXERIL [Concomitant]
  28. CYCLOBENZAPRINE [Concomitant]
  29. ZOFRAN [Concomitant]
  30. COLACE [Concomitant]
  31. ELIDEL [Suspect]
     Indication: ECZEMA
     Dosage: 20 MG QD
     Dates: start: 20041101
  32. VITAMIN D [Concomitant]
  33. CEFADROXIL [Concomitant]
  34. ALLEGRA-D 12 HOUR [Concomitant]
  35. NEO-POLYCIN [Concomitant]
  36. OXYCODONE HYDROCHLORIDE [Concomitant]
  37. NAPROXEN [Concomitant]
  38. AKNE-MYCIN [Concomitant]
  39. DIAZEPAM [Concomitant]

REACTIONS (34)
  - ORAL DISORDER [None]
  - JOINT STIFFNESS [None]
  - BREAST FIBROSIS [None]
  - METASTASES TO LYMPH NODES [None]
  - PROGESTERONE RECEPTOR ASSAY POSITIVE [None]
  - OTITIS EXTERNA [None]
  - LIGAMENT DISORDER [None]
  - BREAST INFLAMMATION [None]
  - ARTHRALGIA [None]
  - URINARY TRACT INFECTION [None]
  - ANAEMIA [None]
  - DYSGEUSIA [None]
  - OESTROGEN RECEPTOR ASSAY POSITIVE [None]
  - SCAR [None]
  - LYMPHOEDEMA [None]
  - MUSCLE DISORDER [None]
  - SKIN EXFOLIATION [None]
  - PERIODONTITIS [None]
  - DENTAL CARIES [None]
  - ALOPECIA [None]
  - FATIGUE [None]
  - DRY EYE [None]
  - DYSFUNCTIONAL UTERINE BLEEDING [None]
  - INJURY [None]
  - GINGIVITIS [None]
  - GINGIVAL BLEEDING [None]
  - LEUKOCYTOSIS [None]
  - MYALGIA [None]
  - PRURITUS [None]
  - BREAST CANCER STAGE III [None]
  - MAMMARY DUCT ECTASIA [None]
  - DERMOID CYST [None]
  - URINE LEUKOCYTE ESTERASE POSITIVE [None]
  - ORAL PAIN [None]
